FAERS Safety Report 22256693 (Version 7)
Quarter: 2024Q3

REPORT INFORMATION
  Report Type: Spontaneous
  Country: US (occurrence: US)
  Receive Date: 20230426
  Receipt Date: 20240729
  Transmission Date: 20241017
  Serious: Yes (Disabling, Other)
  Sender: AMGEN
  Company Number: US-HORIZON THERAPEUTICS-HZN-2023-003042

PATIENT
  Age: 57 Year
  Sex: Female

DRUGS (62)
  1. TEPEZZA [Suspect]
     Active Substance: TEPROTUMUMAB-TRBW
     Indication: Endocrine ophthalmopathy
     Dosage: UNK, FIRST INFUSION
     Route: 042
     Dates: start: 20220303
  2. TEPEZZA [Suspect]
     Active Substance: TEPROTUMUMAB-TRBW
     Indication: Graves^ disease
     Dosage: UNK, SECOND INFUSION
     Route: 042
     Dates: start: 20220324
  3. TEPEZZA [Suspect]
     Active Substance: TEPROTUMUMAB-TRBW
     Dosage: UNK, THIRD INFUSION
     Route: 042
     Dates: start: 20220414
  4. TEPEZZA [Suspect]
     Active Substance: TEPROTUMUMAB-TRBW
     Dosage: UNK, FOURTH INFUSION
     Route: 042
     Dates: start: 20220505
  5. TEPEZZA [Suspect]
     Active Substance: TEPROTUMUMAB-TRBW
     Dosage: UNK, FIFTH INFUSION
     Route: 042
     Dates: start: 20220525
  6. TEPEZZA [Suspect]
     Active Substance: TEPROTUMUMAB-TRBW
     Dosage: UNK, SIXTH INFUSION
     Route: 042
     Dates: start: 20220604
  7. TEPEZZA [Suspect]
     Active Substance: TEPROTUMUMAB-TRBW
     Dosage: UNK, SEVENTH INFUSION
     Route: 042
     Dates: start: 20220625
  8. TEPEZZA [Suspect]
     Active Substance: TEPROTUMUMAB-TRBW
     Dosage: UNK, EIGHTH INFUSION
     Route: 042
     Dates: start: 20220716
  9. TEPEZZA [Suspect]
     Active Substance: TEPROTUMUMAB-TRBW
     Dosage: UNK (UNKNOWN INFUSION)
     Route: 042
     Dates: start: 20220806
  10. ASPIRIN [Concomitant]
     Active Substance: ASPIRIN
     Dosage: 81 MG, QD
     Route: 048
     Dates: start: 20220602
  11. LIPITOR [Concomitant]
     Active Substance: ATORVASTATIN CALCIUM
     Dosage: UNK
     Dates: start: 20211202
  12. LOTENSIN [Concomitant]
     Active Substance: BENAZEPRIL HYDROCHLORIDE
     Dosage: 20 MG, QD
     Route: 048
     Dates: start: 20200528
  13. TESSALON [Concomitant]
     Active Substance: BENZONATATE
     Dosage: UNK
     Route: 048
     Dates: start: 20210920
  14. COENZYME Q10 [Concomitant]
     Active Substance: DIETARY SUPPLEMENT\UBIDECARENONE
     Dosage: 100 MG, QD
     Route: 048
  15. FLEXERIL [Concomitant]
     Active Substance: CYCLOBENZAPRINE HYDROCHLORIDE
     Dosage: 10 MG, TID
     Route: 048
     Dates: start: 20210903
  16. COSOPT [Concomitant]
     Active Substance: DORZOLAMIDE HYDROCHLORIDE\TIMOLOL MALEATE
  17. CYMBALTA [Concomitant]
     Active Substance: DULOXETINE HYDROCHLORIDE
     Dosage: 60 MG, QD
     Route: 048
     Dates: start: 20191017
  18. KEPPRA XR [Concomitant]
     Active Substance: LEVETIRACETAM
     Dosage: 2 TABLETS BY MOUTH EVERY DAY
     Route: 048
     Dates: start: 20200623
  19. CLARITIN [Concomitant]
     Active Substance: LORATADINE
     Dosage: 1 TABLETS DAILY
     Route: 048
     Dates: start: 20191121
  20. CLARITIN [Concomitant]
     Active Substance: LORATADINE
     Dosage: UNK
     Route: 048
     Dates: start: 20220111
  21. MS CONTIN [Concomitant]
     Active Substance: MORPHINE SULFATE
     Dosage: UNK
     Route: 048
     Dates: start: 20191219
  22. Naproxen sodium controlled release [Concomitant]
     Dosage: UNK
     Route: 048
     Dates: start: 20191017
  23. IMITREX [Concomitant]
     Active Substance: SUMATRIPTAN SUCCINATE
     Dosage: UNK
     Route: 048
  24. LOTREL [Concomitant]
     Active Substance: AMLODIPINE BESYLATE\BENAZEPRIL HYDROCHLORIDE
     Dosage: 1 DOSAGE FORM, QD
     Route: 048
     Dates: start: 20200414
  25. PRILOSEC [Concomitant]
     Active Substance: OMEPRAZOLE MAGNESIUM
     Dosage: 40 MG, QD
     Route: 048
     Dates: start: 20200526
  26. CARAFATE [Concomitant]
     Active Substance: SUCRALFATE
     Dosage: 1 DOSAGE FORM, QID
     Route: 048
     Dates: start: 20191017
  27. LOTEMAX [Concomitant]
     Active Substance: LOTEPREDNOL ETABONATE
     Dosage: 1 DROP TO BOTH EYES FOUR TIMES DAILY
     Dates: start: 20180109
  28. LOTEMAX [Concomitant]
     Active Substance: LOTEPREDNOL ETABONATE
     Dosage: 1 DROP TO BOTH EYES FOUR TIMES DAILY
     Dates: start: 20191119
  29. ACULAR [Concomitant]
     Active Substance: KETOROLAC TROMETHAMINE
     Dosage: 1 DROP IN BOTH EYES FOUR TIMES DAILY
     Dates: start: 20170103
  30. OXYCONTIN [Concomitant]
     Active Substance: OXYCODONE HYDROCHLORIDE
  31. FLUTICASONE [Concomitant]
     Active Substance: FLUTICASONE
     Dosage: 1 SPRAY EVERYDAY
     Route: 045
  32. ALBUTEROL SULFATE [Concomitant]
     Active Substance: ALBUTEROL SULFATE
  33. OMEPRAZOLE [Concomitant]
     Active Substance: OMEPRAZOLE
     Dosage: 1 CAPSULE TWICE DAILY
     Route: 048
  34. DICLOFENAC [Concomitant]
     Active Substance: DICLOFENAC
     Dosage: 1 TABLET ONCE A DAY
     Route: 048
  35. DORZOLAMIDE [Concomitant]
     Active Substance: DORZOLAMIDE
     Dosage: 1 DROP IN BOTH EYES THREE TIMES A DAY
  36. ALBUTEROL SULFATE\IPRATROPIUM BROMIDE [Concomitant]
     Active Substance: ALBUTEROL SULFATE\IPRATROPIUM BROMIDE
     Dosage: INHALE 3 ML TWICE A DAY BY NEBULIZATION
     Dates: start: 20211014
  37. ESCITALOPRAM [Concomitant]
     Active Substance: ESCITALOPRAM OXALATE
  38. PROCTOSOL HC [Concomitant]
  39. LATANOPROST [Concomitant]
     Active Substance: LATANOPROST
  40. ROSUVASTATIN [Concomitant]
     Active Substance: ROSUVASTATIN\ROSUVASTATIN CALCIUM
     Dosage: 1 TABLET BY MOUTH EVERY NIGHT AT BEDTIME
     Route: 048
     Dates: start: 20211223
  41. GABAPENTIN [Concomitant]
     Active Substance: GABAPENTIN
     Dosage: 1 TABLET BY MOUTH EVERY NIGHT AT BEDTIME
     Route: 048
  42. ACETAMINOPHEN [Concomitant]
     Active Substance: ACETAMINOPHEN
     Dosage: 2 TABLETS EVERY 6 HOURS AS NEEDED
     Route: 048
     Dates: start: 20211216
  43. EDARBYCLOR [Concomitant]
     Active Substance: AZILSARTAN KAMEDOXOMIL\CHLORTHALIDONE
     Dosage: 40 MG-25 MG TABLET
     Route: 048
  44. MONTELUKAST [Concomitant]
     Active Substance: MONTELUKAST SODIUM
     Dosage: 1 TABLET BY MOUTH EVERY AT BEDTIME
     Route: 048
  45. ERYTHROMYCIN [Concomitant]
     Active Substance: ERYTHROMYCIN
     Dosage: APPLY 1 CM RIBBON INTO THE LOWER CONJUNCTIVAL SAC(S) IN THE AFFECTED EYE(S) BY OPHTHALMIC ROUTE 3 TI
  46. HYDROCHLOROTHIAZIDE [Concomitant]
     Active Substance: HYDROCHLOROTHIAZIDE
     Dosage: 1 TABLET DAILY
     Route: 048
     Dates: start: 20211223, end: 20220331
  47. VITAMINS [Concomitant]
     Active Substance: VITAMINS
     Dosage: 2 TABLET DAILY
     Route: 048
  48. ZINC [Concomitant]
     Active Substance: ZINC
     Dosage: 2 TABLET EVERYDAY
     Route: 048
  49. CALCIUM\CHOLECALCIFEROL [Concomitant]
     Active Substance: CALCIUM\CHOLECALCIFEROL
     Dosage: 2 TABLET DAILY
     Route: 048
  50. IBUPROFEN [Concomitant]
     Active Substance: IBUPROFEN
     Dosage: UNK
     Route: 048
     Dates: start: 20210903, end: 20211026
  51. ELETRIPTAN [Concomitant]
     Active Substance: ELETRIPTAN
     Dosage: UNK
  52. LISINOPRIL [Concomitant]
     Active Substance: LISINOPRIL
     Dosage: UNK
     Dates: end: 20210927
  53. INDAPAMIDE [Concomitant]
     Active Substance: INDAPAMIDE
     Dosage: UNK
  54. POTASSIUM [Concomitant]
     Active Substance: POTASSIUM
     Route: 048
  55. AMLODIPINE [Concomitant]
     Active Substance: AMLODIPINE BESYLATE
  56. ATORVASTATIN [Concomitant]
     Active Substance: ATORVASTATIN
  57. ALBUTEROL [Concomitant]
     Active Substance: ALBUTEROL
  58. BENADRYL [Concomitant]
     Active Substance: DIPHENHYDRAMINE HYDROCHLORIDE
  59. EPIPEN [Concomitant]
     Active Substance: EPINEPHRINE
  60. PEPCID [Concomitant]
     Active Substance: FAMOTIDINE
  61. HEPARIN [Concomitant]
     Active Substance: HEPARIN SODIUM
  62. SODIUM CHLORIDE [Concomitant]
     Active Substance: SODIUM CHLORIDE
     Dosage: UNK (0.9 PERCENT)

REACTIONS (33)
  - Physical disability [Not Recovered/Not Resolved]
  - Disability [Not Recovered/Not Resolved]
  - Immunodeficiency [Unknown]
  - Deafness permanent [Not Recovered/Not Resolved]
  - Vision blurred [Recovering/Resolving]
  - Condition aggravated [Unknown]
  - Pain [Not Recovered/Not Resolved]
  - Injury [Not Recovered/Not Resolved]
  - Anxiety [Not Recovered/Not Resolved]
  - Emotional distress [Unknown]
  - Discomfort [Unknown]
  - Concomitant disease aggravated [Not Recovered/Not Resolved]
  - Impaired quality of life [Not Recovered/Not Resolved]
  - Epistaxis [Unknown]
  - Economic problem [Not Recovered/Not Resolved]
  - Hypoaesthesia [Unknown]
  - Dizziness [Recovering/Resolving]
  - Malaise [Recovered/Resolved]
  - Paraesthesia [Unknown]
  - Dysuria [Unknown]
  - Sensory loss [Unknown]
  - Abdominal pain [Unknown]
  - Myalgia [Unknown]
  - Haemorrhoids [Unknown]
  - Urinary tract infection [Unknown]
  - Influenza like illness [Unknown]
  - Product quality issue [Unknown]
  - Inappropriate schedule of product administration [Unknown]
  - Conjunctivitis allergic [Unknown]
  - SARS-CoV-2 test positive [Unknown]
  - Fatigue [Unknown]
  - Tinnitus [Unknown]
  - Headache [Recovered/Resolved]

NARRATIVE: CASE EVENT DATE: 20220101
